FAERS Safety Report 6708080-5 (Version None)
Quarter: 2010Q2

REPORT INFORMATION
  Report Type: 
  Country: None (occurrence: None)
  Receive Date: 20100503
  Receipt Date: 20090601
  Transmission Date: 20101027
  Serious: No
  Sender: FDA-Public Use
  Company Number: US-ASTRAZENECA-2009UW05555

PATIENT
  Age: 65 Year
  Sex: Female
  Weight: 68 kg

DRUGS (8)
  1. NEXIUM [Suspect]
     Indication: GASTROOESOPHAGEAL REFLUX DISEASE
     Route: 048
     Dates: start: 20090226, end: 20090330
  2. NEXIUM [Suspect]
     Indication: HERNIA
     Route: 048
     Dates: start: 20090226, end: 20090330
  3. NEXIUM [Suspect]
     Indication: OESOPHAGEAL ULCER
     Route: 048
     Dates: start: 20090226, end: 20090330
  4. NEXIUM [Suspect]
     Indication: DYSPEPSIA
     Route: 048
     Dates: start: 20090226, end: 20090330
  5. NEXIUM [Suspect]
     Route: 048
     Dates: start: 20090226, end: 20090330
  6. BLOOD PRESSURE MEDICATION [Concomitant]
  7. AVAPRO [Concomitant]
  8. MULTI-VITAMINS [Concomitant]

REACTIONS (12)
  - BACK PAIN [None]
  - CHOKING [None]
  - COUGH [None]
  - DIARRHOEA [None]
  - ENTERITIS [None]
  - FATIGUE [None]
  - GASTRITIS [None]
  - HICCUPS [None]
  - INCREASED UPPER AIRWAY SECRETION [None]
  - NON-CARDIAC CHEST PAIN [None]
  - OEDEMA PERIPHERAL [None]
  - RHINORRHOEA [None]
